FAERS Safety Report 4904770-5 (Version None)
Quarter: 2006Q1

REPORT INFORMATION
  Report Type: 
  Country: None (occurrence: None)
  Receive Date: 20060208
  Receipt Date: 20051003
  Transmission Date: 20060701
  Serious: No
  Sender: FDA-Public Use
  Company Number: US-GLAXOSMITHKLINE-A0576713A

PATIENT
  Age: 73 Year
  Sex: Female

DRUGS (5)
  1. PAXIL [Suspect]
     Route: 048
  2. VERAPAMIL [Concomitant]
  3. DYAZIDE [Concomitant]
  4. VICODIN [Concomitant]
  5. CELEBREX [Concomitant]

REACTIONS (1)
  - ELECTRIC SHOCK [None]
